FAERS Safety Report 6255441-7 (Version None)
Quarter: 2009Q3

REPORT INFORMATION
  Report Type: 
  Country: None (occurrence: None)
  Receive Date: 20090702
  Receipt Date: 20090626
  Transmission Date: 20100115
  Serious: Yes (Hospitalization, Other)
  Sender: FDA-Public Use
  Company Number: NL-ABBOTT-09P-114-0582166-00

PATIENT
  Sex: Female
  Weight: 59 kg

DRUGS (6)
  1. HUMIRA [Suspect]
     Indication: RHEUMATOID ARTHRITIS
     Route: 058
     Dates: start: 20070701, end: 20071101
  2. HUMIRA [Suspect]
     Route: 058
     Dates: start: 20080401, end: 20080701
  3. METHOTREXATE [Concomitant]
     Indication: RHEUMATOID ARTHRITIS
     Route: 048
     Dates: start: 20070701
  4. CALCICHEW D3 [Concomitant]
     Indication: RHEUMATOID ARTHRITIS
     Dosage: 500/400 NOS
     Route: 048
     Dates: start: 20070701
  5. FOLIC ACID [Concomitant]
     Indication: RHEUMATOID ARTHRITIS
     Route: 048
     Dates: start: 20070701
  6. FORAMAX [Concomitant]
     Indication: RHEUMATOID ARTHRITIS
     Route: 048
     Dates: start: 20070701

REACTIONS (4)
  - BLOOD PRESSURE DECREASED [None]
  - LUNG NEOPLASM MALIGNANT [None]
  - PNEUMONIA [None]
  - PYREXIA [None]
